FAERS Safety Report 12652594 (Version 4)
Quarter: 2020Q3

REPORT INFORMATION
  Report Type: Spontaneous
  Country: US (occurrence: US)
  Receive Date: 20160815
  Receipt Date: 20200901
  Transmission Date: 20201102
  Serious: Yes (Hospitalization, Other)
  Sender: FDA-Public Use
  Company Number: US-PFIZER INC-2016385767

PATIENT
  Age: 66 Year
  Sex: Male

DRUGS (2)
  1. BOSULIF [Suspect]
     Active Substance: BOSUTINIB MONOHYDRATE
     Indication: CHRONIC MYELOID LEUKAEMIA
     Dosage: 500 MG
  2. BOSULIF [Suspect]
     Active Substance: BOSUTINIB MONOHYDRATE
     Dosage: 100 MG [TAKE THREE PILLS TWO DAYS A WEEK AND TWO PILLS DAILY ON THE OTHER DAYS]

REACTIONS (4)
  - Diarrhoea [Unknown]
  - Off label use [Unknown]
  - Rash [Unknown]
  - Thrombocytopenia [Unknown]
